FAERS Safety Report 10024955 (Version 1)
Quarter: 2014Q1

REPORT INFORMATION
  Report Type: Spontaneous
  Country: JP (occurrence: None)
  Receive Date: 20140210
  Receipt Date: 20140210
  Transmission Date: 20141002
  Serious: No
  Sender: FDA-Public Use
  Company Number: ADR-2009-7106

PATIENT
  Age: 35 Year
  Sex: Female
  Weight: 38 kg

DRUGS (3)
  1. GABALON INTRALTHECAL(BACLOFEN INJECTION) [Suspect]
     Dosage: 115-520 MCG/DAY
     Dates: start: 20081022
  2. GABALON [Concomitant]
  3. DIDRONEL [Concomitant]

REACTIONS (4)
  - Pyrexia [None]
  - Implant site infection [None]
  - Implant site extravasation [None]
  - Pain of skin [None]
